FAERS Safety Report 8395274-9 (Version None)
Quarter: 2012Q2

REPORT INFORMATION
  Report Type: 
  Country: None (occurrence: None)
  Receive Date: 20120530
  Receipt Date: 20120524
  Transmission Date: 20120825
  Serious: Yes (Hospitalization, Other)
  Sender: FDA-Public Use
  Company Number: PHEH2012US010890

PATIENT
  Sex: Male

DRUGS (1)
  1. TEKTURNA [Suspect]
     Dosage: UNK UKN, UNK

REACTIONS (1)
  - PANCREATITIS ACUTE [None]
